FAERS Safety Report 19638752 (Version 1)
Quarter: 2021Q3

REPORT INFORMATION
  Report Type: Spontaneous
  Country: FR (occurrence: FR)
  Receive Date: 20210730
  Receipt Date: 20210730
  Transmission Date: 20211014
  Serious: Yes (Other)
  Sender: FDA-Public Use
  Company Number: FR-INDIVIOR US-INDV-130602-2021

PATIENT

DRUGS (4)
  1. PREGABALINE [Suspect]
     Active Substance: PREGABALIN
     Indication: PRODUCT USED FOR UNKNOWN INDICATION
     Dosage: 900 MILLIGRAM, UNK
     Route: 048
     Dates: start: 20210610, end: 20210610
  2. ZOPICLONE [Suspect]
     Active Substance: ZOPICLONE
     Indication: PRODUCT USED FOR UNKNOWN INDICATION
     Dosage: 52.5 MILLIGRAM, UNK
     Route: 048
     Dates: start: 20210610, end: 20210610
  3. SERESTA [Suspect]
     Active Substance: OXAZEPAM
     Indication: PRODUCT USED FOR UNKNOWN INDICATION
     Dosage: 15 DOSAGE FORM, UNK
     Route: 048
     Dates: start: 20210610, end: 20210610
  4. SUBUTEX [Suspect]
     Active Substance: BUPRENORPHINE HYDROCHLORIDE
     Indication: PRODUCT SUBSTITUTION
     Dosage: 12 DOSAGE FORM, UNK
     Route: 060
     Dates: start: 20210610, end: 20210610

REACTIONS (2)
  - Drug abuse [Not Recovered/Not Resolved]
  - Poisoning deliberate [Recovered/Resolved]

NARRATIVE: CASE EVENT DATE: 20210610
